FAERS Safety Report 21238543 (Version 1)
Quarter: 2022Q3

REPORT INFORMATION
  Report Type: Spontaneous
  Country: US (occurrence: US)
  Receive Date: 20220822
  Receipt Date: 20220822
  Transmission Date: 20221026
  Serious: No
  Sender: FDA-Public Use
  Company Number: US-BAYER-2022A112595

PATIENT
  Age: 40 Year
  Sex: Female

DRUGS (1)
  1. ALEVE [Suspect]
     Active Substance: NAPROXEN SODIUM
     Indication: Pain
     Dosage: UNK, BID
     Route: 048
     Dates: start: 202207, end: 20220811

REACTIONS (2)
  - Drug ineffective [Unknown]
  - Incorrect product administration duration [None]

NARRATIVE: CASE EVENT DATE: 20220101
